FAERS Safety Report 7277582-8 (Version None)
Quarter: 2011Q1

REPORT INFORMATION
  Report Type: 
  Country: None (occurrence: None)
  Receive Date: 20110207
  Receipt Date: 20110203
  Transmission Date: 20110831
  Serious: Yes (Other)
  Sender: FDA-Public Use
  Company Number: US-AMGEN-USASP2011005181

PATIENT
  Sex: Male
  Weight: 102.49 kg

DRUGS (2)
  1. NPLATE [Suspect]
  2. CORTICOSTEROIDS [Suspect]

REACTIONS (3)
  - PARAPROTEINAEMIA [None]
  - EPISTAXIS [None]
  - THROMBOCYTOPENIA [None]
